FAERS Safety Report 19279958 (Version 1)
Quarter: 2021Q2

REPORT INFORMATION
  Report Type: Spontaneous
  Country: US (occurrence: US)
  Receive Date: 20210520
  Receipt Date: 20210520
  Transmission Date: 20210717
  Serious: Yes (Death, Other)
  Sender: FDA-Public Use
  Company Number: US-BAYER-2021-143664

PATIENT
  Age: 50 Year
  Sex: Female

DRUGS (4)
  1. TICAGRELOR. [Interacting]
     Active Substance: TICAGRELOR
  2. REMDESIVIR. [Suspect]
     Active Substance: REMDESIVIR
  3. ACETYLSALICYLIC ACID [Suspect]
     Active Substance: ASPIRIN
  4. ENOXAPARIN [Interacting]
     Active Substance: ENOXAPARIN

REACTIONS (5)
  - Hypotension [None]
  - Haemorrhage [None]
  - Pulmonary embolism [Fatal]
  - Labelled drug-drug interaction medication error [None]
  - Cardiac arrest [Fatal]
